FAERS Safety Report 11403327 (Version 1)
Quarter: 2015Q3

REPORT INFORMATION
  Report Type: Spontaneous
  Country: US (occurrence: US)
  Receive Date: 20150821
  Receipt Date: 20150821
  Transmission Date: 20151125
  Serious: No
  Sender: FDA-Public Use
  Company Number: US-TEVA-537352USA

PATIENT
  Sex: Male

DRUGS (2)
  1. CLONIDINE. [Suspect]
     Active Substance: CLONIDINE
     Indication: ATTENTION DEFICIT/HYPERACTIVITY DISORDER
     Route: 062
     Dates: start: 20141112
  2. CLONIDINE. [Suspect]
     Active Substance: CLONIDINE
     Indication: AUTISM

REACTIONS (3)
  - Application site reaction [Unknown]
  - Pruritus [Unknown]
  - Skin irritation [Unknown]
